FAERS Safety Report 8002037-2 (Version None)
Quarter: 2011Q4

REPORT INFORMATION
  Report Type: 
  Country: None (occurrence: None)
  Receive Date: 20111222
  Receipt Date: 20111213
  Transmission Date: 20120403
  Serious: Yes (Hospitalization)
  Sender: FDA-Public Use
  Company Number: US-ABBOTT-11P-163-0880130-00

PATIENT
  Age: 39 Year
  Sex: Female

DRUGS (4)
  1. DEPAKOTE [Suspect]
     Indication: BIPOLAR DISORDER
     Route: 048
     Dates: start: 20111014, end: 20111109
  2. IBUPROFEN [Concomitant]
     Indication: PRODUCT USED FOR UNKNOWN INDICATION
     Dates: start: 19910101
  3. DEPAKOTE [Suspect]
     Dosage: TOOK 20-25, 500MG CAPSULES
     Route: 048
     Dates: start: 20111109, end: 20111109
  4. LURASIDONE HYDROCHLORIDE [Suspect]
     Indication: BIPOLAR I DISORDER
     Route: 048
     Dates: start: 20111014, end: 20111109

REACTIONS (2)
  - OVERDOSE [None]
  - SUICIDE ATTEMPT [None]
